FAERS Safety Report 8414719-9 (Version None)
Quarter: 2012Q2

REPORT INFORMATION
  Report Type: 
  Country: None (occurrence: None)
  Receive Date: 20120605
  Receipt Date: 20120523
  Transmission Date: 20120825
  Serious: Yes (Hospitalization)
  Sender: FDA-Public Use
  Company Number: CN-TEVA-334347ISR

PATIENT
  Sex: Male
  Weight: 81 kg

DRUGS (8)
  1. RASAGILINE MESYLATE [Suspect]
     Indication: PARKINSON'S DISEASE
     Dosage: 1 MG OR PLACEBO
     Dates: start: 20120105
  2. SINEMET [Concomitant]
     Indication: PARKINSON'S DISEASE
     Dosage: 1ST DOSE
     Route: 048
     Dates: start: 20111012, end: 20120326
  3. SINEMET [Concomitant]
     Dosage: 3RD DOSE
     Route: 048
     Dates: start: 20111021
  4. SINEMET [Concomitant]
     Dosage: 1ST DOSE
     Route: 048
     Dates: start: 20120327
  5. ENTACAPONE [Concomitant]
     Indication: PARKINSON'S DISEASE
     Dosage: 200 MILLIGRAM;
     Route: 048
     Dates: start: 20100101
  6. PIRIBEDIL SUSTAINED RELEASE TABLETS [Concomitant]
     Indication: PARKINSON'S DISEASE
     Dosage: 150 MILLIGRAM;
     Route: 048
     Dates: start: 20110101
  7. MADOPAR [Concomitant]
     Indication: PARKINSON'S DISEASE
     Dosage: 1ST DOSE
     Route: 048
     Dates: start: 20111021
  8. SINEMET [Concomitant]
     Dosage: 2ND DOSE
     Route: 048
     Dates: start: 20111021

REACTIONS (1)
  - PARKINSON'S DISEASE [None]
